FAERS Safety Report 7405984-5 (Version None)
Quarter: 2011Q2

REPORT INFORMATION
  Report Type: 
  Country: None (occurrence: None)
  Receive Date: 20110406
  Receipt Date: 20110406
  Transmission Date: 20111010
  Serious: Yes (Disabling, Other)
  Sender: FDA-Public Use
  Company Number: None

PATIENT
  Age: 55 Year
  Sex: Female
  Weight: 68.0396 kg

DRUGS (2)
  1. VALACYCLOVIR [Suspect]
     Indication: ORAL HERPES
     Dosage: 1 BID PO
     Route: 048
     Dates: start: 20110317, end: 20110401
  2. VALACYCLOVIR [Suspect]
     Indication: ORAL HERPES
     Dosage: 1 BID PO
     Route: 048

REACTIONS (3)
  - DRUG INEFFECTIVE [None]
  - PRODUCT SUBSTITUTION ISSUE [None]
  - PRODUCT QUALITY ISSUE [None]
